FAERS Safety Report 4978436-X (Version None)
Quarter: 2006Q2

REPORT INFORMATION
  Report Type: 
  Country: None (occurrence: None)
  Receive Date: 20060420
  Receipt Date: 20060116
  Transmission Date: 20061013
  Serious: Yes (Hospitalization)
  Sender: FDA-Public Use
  Company Number: US-BOEHRINGER INGELHEIM PHARMACEUTICALS, INC.-2006-BP-00536BP

PATIENT
  Sex: Female

DRUGS (7)
  1. SPIRIVA [Suspect]
     Indication: ASTHMA
     Route: 055
     Dates: start: 20050101, end: 20060115
  2. SINGULAIR [Concomitant]
     Indication: ASTHMA
  3. ADVAIR DISKUS 100/50 [Concomitant]
     Indication: ASTHMA
  4. NORVASC [Concomitant]
     Indication: HYPERTENSION
  5. LIPITOR [Concomitant]
     Indication: BLOOD CHOLESTEROL INCREASED
  6. ALLEGRA [Concomitant]
     Indication: ASTHMA
  7. RELAFEN [Concomitant]
     Indication: BACK PAIN

REACTIONS (16)
  - ADVERSE DRUG REACTION [None]
  - AGITATION [None]
  - APHONIA [None]
  - BACK INJURY [None]
  - BACK PAIN [None]
  - DIZZINESS [None]
  - DYSPHAGIA [None]
  - DYSPHONIA [None]
  - DYSPNOEA [None]
  - GASTROOESOPHAGEAL REFLUX DISEASE [None]
  - HIATUS HERNIA [None]
  - LARYNGITIS [None]
  - NASOPHARYNGITIS [None]
  - NEUROPATHY PERIPHERAL [None]
  - OESOPHAGEAL DISORDER [None]
  - THERMAL BURN [None]
